FAERS Safety Report 13509625 (Version 1)
Quarter: 2017Q2

REPORT INFORMATION
  Report Type: Spontaneous
  Country: US (occurrence: US)
  Receive Date: 20170503
  Receipt Date: 20170503
  Transmission Date: 20170830
  Serious: No
  Sender: FDA-Public Use
  Company Number: US-SA-2017SA027983

PATIENT
  Sex: Female

DRUGS (10)
  1. TRAZODONE [Concomitant]
     Active Substance: TRAZODONE HYDROCHLORIDE
  2. PRALUENT [Suspect]
     Active Substance: ALIROCUMAB
     Route: 058
     Dates: start: 20161111
  3. AMLODIPINE/VALSARTAN [Concomitant]
     Dosage: 5-160MG
  4. ALIROCUMAB PREFILLED PEN [Concomitant]
     Active Substance: ALIROCUMAB
     Dates: start: 20161111
  5. ZETIA [Concomitant]
     Active Substance: EZETIMIBE
  6. CEPHALEXIN. [Concomitant]
     Active Substance: CEPHALEXIN
  7. NAMENDA [Concomitant]
     Active Substance: MEMANTINE HYDROCHLORIDE
  8. KETOCONAZOLE. [Concomitant]
     Active Substance: KETOCONAZOLE
     Dosage: STRENGTH: 2%
  9. MUPIROCIN. [Concomitant]
     Active Substance: MUPIROCIN
     Dosage: STRENGTH: 2%
  10. FLUCONAZOLE. [Concomitant]
     Active Substance: FLUCONAZOLE

REACTIONS (2)
  - Muscular weakness [Not Recovered/Not Resolved]
  - Unevaluable event [Unknown]
